FAERS Safety Report 20772236 (Version 2)
Quarter: 2022Q2

REPORT INFORMATION
  Report Type: Report from Study
  Country: US (occurrence: US)
  Receive Date: 20220502
  Receipt Date: 20220520
  Transmission Date: 20220720
  Serious: No
  Sender: FDA-Public Use
  Company Number: US-AMGEN-USASL2022068564

PATIENT
  Age: 60 Year
  Sex: Female

DRUGS (5)
  1. XGEVA [Suspect]
     Active Substance: DENOSUMAB
     Indication: Prophylaxis
     Dosage: UNK, QMO
     Route: 065
     Dates: start: 20211216
  2. XGEVA [Suspect]
     Active Substance: DENOSUMAB
     Indication: Bone lesion
  3. NEULASTA [Suspect]
     Active Substance: PEGFILGRASTIM
     Indication: Product used for unknown indication
     Dosage: UNK
     Route: 065
  4. KEYTRUDA [Concomitant]
     Active Substance: PEMBROLIZUMAB
     Indication: Endometrial cancer
  5. LENVIMA [Concomitant]
     Active Substance: LENVATINIB
     Indication: Endometrial cancer

REACTIONS (1)
  - Tooth infection [Unknown]
